FAERS Safety Report 7348211-X (Version None)
Quarter: 2011Q1

REPORT INFORMATION
  Report Type: 
  Country: None (occurrence: None)
  Receive Date: 20110311
  Receipt Date: 20110111
  Transmission Date: 20110831
  Serious: No
  Sender: FDA-Public Use
  Company Number: US-BAYER-2011-003933

PATIENT
  Sex: Male
  Weight: 73.469 kg

DRUGS (7)
  1. ALEVE (CAPLET) [Suspect]
     Indication: PRODUCT USED FOR UNKNOWN INDICATION
     Dosage: BOTTLE SIZE 130CT
     Route: 048
     Dates: start: 20100101, end: 20110101
  2. ASPIRIN [Concomitant]
  3. MULTI-VITAMIN [Concomitant]
  4. AVODART [Concomitant]
     Dosage: 0.5 MG, UNK
  5. ALEVE (CAPLET) [Suspect]
     Dosage: BOTTLE SIZE 130CT
     Route: 048
     Dates: start: 20110108
  6. BISOPROLOL FUMARATE [Concomitant]
     Dosage: 5 MG, UNK
  7. CRESTOR [Concomitant]

REACTIONS (1)
  - DRUG INEFFECTIVE [None]
